FAERS Safety Report 24065916 (Version 2)
Quarter: 2024Q3

REPORT INFORMATION
  Report Type: Report from Study
  Country: US (occurrence: US)
  Receive Date: 20240709
  Receipt Date: 20240805
  Transmission Date: 20241016
  Serious: Yes (Hospitalization)
  Sender: PFIZER
  Company Number: US-PFIZER INC-202400206201

PATIENT
  Age: 43 Year
  Sex: Male

DRUGS (1)
  1. INLYTA [Suspect]
     Active Substance: AXITINIB
     Dosage: 5 MG TABLET BY MOUTH TWICE A DAY
     Route: 048
     Dates: start: 20240620

REACTIONS (6)
  - Viral infection [Recovering/Resolving]
  - Asthenia [Recovering/Resolving]
  - Laziness [Recovering/Resolving]
  - Diarrhoea [Recovering/Resolving]
  - Pain [Recovering/Resolving]
  - Product dose omission in error [Recovered/Resolved]
